FAERS Safety Report 18967570 (Version 1)
Quarter: 2021Q1

REPORT INFORMATION
  Report Type: Spontaneous
  Country: US (occurrence: US)
  Receive Date: 20210304
  Receipt Date: 20210304
  Transmission Date: 20210420
  Serious: Yes (Death, Other)
  Sender: FDA-Public Use
  Company Number: US-PFIZER INC-2021180038

PATIENT
  Age: 82 Year
  Sex: Male

DRUGS (2)
  1. DOXYCYCLINE HYCLATE. [Suspect]
     Active Substance: DOXYCYCLINE HYCLATE
     Indication: STAPHYLOCOCCAL SEPSIS
     Dosage: UNK
  2. DAPTOMYCIN. [Suspect]
     Active Substance: DAPTOMYCIN
     Indication: STAPHYLOCOCCAL SEPSIS
     Dosage: UNK

REACTIONS (4)
  - Pleuroparenchymal fibroelastosis [Fatal]
  - Eosinophilia [Fatal]
  - Eosinophilic pneumonia [Fatal]
  - Off label use [Unknown]
